FAERS Safety Report 13917288 (Version 2)
Quarter: 2017Q4

REPORT INFORMATION
  Report Type: Spontaneous
  Country: US (occurrence: US)
  Receive Date: 20170829
  Receipt Date: 20171012
  Transmission Date: 20180320
  Serious: Yes (Other)
  Sender: FDA-Public Use
  Company Number: US-JNJFOC-20170825928

PATIENT
  Sex: Female

DRUGS (1)
  1. STELARA [Suspect]
     Active Substance: USTEKINUMAB
     Indication: PSORIASIS
     Route: 058
     Dates: end: 201611

REACTIONS (5)
  - Abscess [Unknown]
  - Pelvic abscess [Unknown]
  - Diverticulitis [Unknown]
  - Colostomy closure [Unknown]
  - Psoriasis [Unknown]
